FAERS Safety Report 13431119 (Version 1)
Quarter: 2017Q2

REPORT INFORMATION
  Report Type: Spontaneous
  Country: CN (occurrence: CN)
  Receive Date: 20170412
  Receipt Date: 20170412
  Transmission Date: 20170830
  Serious: Yes (Other)
  Sender: FDA-Public Use
  Company Number: CN-PFIZER INC-2017155365

PATIENT
  Age: 50 Year
  Sex: Female
  Weight: 52 kg

DRUGS (2)
  1. FLUCONAZOLE. [Suspect]
     Active Substance: FLUCONAZOLE
     Dosage: 0.2 G, 1X/DAY
     Route: 041
     Dates: start: 201612, end: 20170103
  2. FLUCONAZOLE. [Suspect]
     Active Substance: FLUCONAZOLE
     Dosage: 0.4 G, 1X/DAY
     Route: 041
     Dates: start: 20161216, end: 20161219

REACTIONS (4)
  - Neutrophil count increased [Recovered/Resolved]
  - Drug hypersensitivity [Unknown]
  - White blood cell count increased [Recovered/Resolved]
  - Bone marrow failure [Recovered/Resolved]

NARRATIVE: CASE EVENT DATE: 20161221
